FAERS Safety Report 9247499 (Version 1)
Quarter: 2013Q2

REPORT INFORMATION
  Report Type: Spontaneous
  Country: JP (occurrence: JP)
  Receive Date: 20130423
  Receipt Date: 20130423
  Transmission Date: 20140414
  Serious: Yes (Other)
  Sender: FDA-Public Use
  Company Number: JP-CELGENEUS-087-21880-13041520

PATIENT
  Age: 60 Year
  Sex: Male

DRUGS (5)
  1. REVLIMID [Suspect]
     Indication: PLASMA CELL MYELOMA
     Route: 048
  2. THALIDOMIDE [Suspect]
     Indication: PLASMA CELL MYELOMA
  3. LENADEX [Suspect]
     Indication: PLASMA CELL MYELOMA
     Route: 048
  4. MELPHALAN [Concomitant]
     Indication: PLASMA CELL MYELOMA
  5. PREDNISONE [Concomitant]
     Indication: PLASMA CELL MYELOMA

REACTIONS (1)
  - Hepatitis B DNA increased [Unknown]
